FAERS Safety Report 4754442-5 (Version None)
Quarter: 2005Q3

REPORT INFORMATION
  Report Type: 
  Country: None (occurrence: None)
  Receive Date: 20050829
  Receipt Date: 20050819
  Transmission Date: 20060218
  Serious: Yes (Hospitalization)
  Sender: FDA-Public Use
  Company Number: NL-BOEHRINGER INGELHEIM PHARMACEUTICALS, INC.-2005-NL-00231NL

PATIENT
  Sex: Female

DRUGS (10)
  1. SPIRIVA [Suspect]
     Route: 055
     Dates: start: 20040201, end: 20050701
  2. SPIRIVA [Suspect]
     Route: 055
     Dates: start: 20050701, end: 20050819
  3. SPIRIVA [Suspect]
     Route: 055
     Dates: start: 20050819
  4. SYMBICORT [Concomitant]
  5. BISOPROLOL [Concomitant]
  6. NORVASC [Concomitant]
  7. APROVEL [Concomitant]
  8. LIPITOR [Concomitant]
     Indication: HYPERCHOLESTEROLAEMIA
  9. LANTUS [Concomitant]
     Indication: DIABETES MELLITUS
  10. ACTRAPID [Concomitant]
     Indication: DIABETES MELLITUS

REACTIONS (2)
  - FATIGUE [None]
  - MYOCARDIAL INFARCTION [None]
